FAERS Safety Report 8950740 (Version 1)
Quarter: 2012Q4

REPORT INFORMATION
  Report Type: 
  Country: KR (occurrence: KR)
  Receive Date: 20121206
  Receipt Date: 20121206
  Transmission Date: 20130627
  Serious: Yes (Other)
  Sender: FDA-Public Use
  Company Number: KR-MYLANLABS-2012S1024511

PATIENT
  Age: 65 Year
  Sex: Male

DRUGS (6)
  1. CLOPIDOGREL [Suspect]
     Indication: CEREBELLAR INFARCTION
     Route: 065
  2. ASPIRIN [Concomitant]
     Indication: CEREBELLAR INFARCTION
     Route: 065
  3. VALPROATE [Concomitant]
     Indication: CEREBELLAR INFARCTION
     Route: 065
  4. CEFOPERAZONE [Concomitant]
     Indication: PNEUMONIA ASPIRATION
     Route: 065
  5. CLINDAMYCIN [Concomitant]
     Indication: PNEUMONIA ASPIRATION
     Route: 065
  6. TEICOPLANIN [Concomitant]
     Indication: PNEUMONIA ASPIRATION
     Route: 065

REACTIONS (1)
  - Acquired haemophilia [Recovered/Resolved]
